FAERS Safety Report 20983217 (Version 2)
Quarter: 2022Q3

REPORT INFORMATION
  Report Type: Spontaneous
  Country: CN (occurrence: CN)
  Receive Date: 20220620
  Receipt Date: 20220701
  Transmission Date: 20221027
  Serious: Yes (Life-Threatening, Hospitalization, Disabling, Other)
  Sender: FDA-Public Use
  Company Number: CN-MLMSERVICE-20220608-3602798-1

PATIENT
  Age: 48 Year
  Sex: Male
  Weight: 60 kg

DRUGS (1)
  1. MANNITOL [Suspect]
     Active Substance: MANNITOL
     Indication: Oedema
     Dosage: 50 G OF 20%, TID (EVERY 8 H)
     Route: 041

REACTIONS (7)
  - Mydriasis [Recovered/Resolved]
  - Brain herniation [Recovered/Resolved]
  - Cerebral mass effect [Recovered/Resolved]
  - Neurological decompensation [Recovered/Resolved]
  - Brain compression [Recovered/Resolved]
  - Cerebral mass effect [Recovered/Resolved]
  - Neurological decompensation [Recovered/Resolved]
